FAERS Safety Report 8224623-7 (Version None)
Quarter: 2012Q1

REPORT INFORMATION
  Report Type: 
  Country: None (occurrence: None)
  Receive Date: 20120321
  Receipt Date: 20120316
  Transmission Date: 20120608
  Serious: Yes (Other)
  Sender: FDA-Public Use
  Company Number: GB-B.I. PHARMACEUTICALS,INC./RIDGEFIELD-2012-UK-00399UK

PATIENT
  Age: 63 Year
  Sex: Male

DRUGS (2)
  1. TRAJENTA [Suspect]
     Indication: DIABETES MELLITUS
     Dates: start: 20120301
  2. ADALAT [Suspect]
     Indication: BLOOD PRESSURE
     Dates: start: 20120301

REACTIONS (2)
  - LIP SWELLING [None]
  - THROAT TIGHTNESS [None]
